FAERS Safety Report 10465809 (Version 1)
Quarter: 2014Q3

REPORT INFORMATION
  Report Type: Spontaneous
  Country: US (occurrence: US)
  Receive Date: 20140921
  Receipt Date: 20140921
  Transmission Date: 20150326
  Serious: No
  Sender: FDA-Public Use
  Company Number: US-US-EMD SERONO, INC.-7321752

PATIENT
  Age: 63 Year
  Sex: Male

DRUGS (2)
  1. REBIF [Suspect]
     Active Substance: INTERFERON BETA-1A
     Dates: start: 201307
  2. REBIF [Suspect]
     Active Substance: INTERFERON BETA-1A
     Indication: PRODUCT USED FOR UNKNOWN INDICATION
     Dates: start: 2005

REACTIONS (1)
  - Vocal cord disorder [Unknown]

NARRATIVE: CASE EVENT DATE: 201401
